FAERS Safety Report 9198805 (Version 1)
Quarter: 2013Q1

REPORT INFORMATION
  Report Type: Spontaneous
  Country: US (occurrence: None)
  Receive Date: 20130327
  Receipt Date: 20130327
  Transmission Date: 20140127
  Serious: Yes (Other)
  Sender: FDA-Public Use
  Company Number: None

PATIENT
  Age: 27 Year
  Sex: Female
  Weight: 54.43 kg

DRUGS (1)
  1. DIVALPROEX SODIUM ER [Suspect]
     Indication: EPILEPSY
     Dosage: 500MG ONE QD ORAL
     Route: 048
     Dates: start: 201209

REACTIONS (1)
  - Convulsion [None]
